FAERS Safety Report 16112313 (Version 4)
Quarter: 2019Q2

REPORT INFORMATION
  Report Type: Report from Study
  Country: US (occurrence: US)
  Receive Date: 20190325
  Receipt Date: 20190517
  Transmission Date: 20190711
  Serious: Yes (Hospitalization, Other)
  Sender: FDA-Public Use
  Company Number: US-B.I. PHARMACEUTICALS,INC./RIDGEFIELD-2018-BI-050164

PATIENT
  Age: 78 Year
  Sex: Female

DRUGS (3)
  1. OFEV [Suspect]
     Active Substance: NINTEDANIB
     Indication: IDIOPATHIC PULMONARY FIBROSIS
     Route: 048
     Dates: start: 20180918
  2. CIPRO [Suspect]
     Active Substance: CIPROFLOXACIN HYDROCHLORIDE
     Indication: URINARY TRACT INFECTION
     Route: 065
  3. ENSURE [Suspect]
     Active Substance: AMINO ACIDS\DEXTROSE\ELECTROLYTES NOS\SOYBEAN OIL\VITAMINS
     Indication: PRODUCT USED FOR UNKNOWN INDICATION
     Route: 065

REACTIONS (23)
  - Diarrhoea [Not Recovered/Not Resolved]
  - Cough [Not Recovered/Not Resolved]
  - Gastrointestinal disorder [Unknown]
  - Weight decreased [Unknown]
  - Musculoskeletal chest pain [Unknown]
  - Dizziness [Not Recovered/Not Resolved]
  - Dry throat [Not Recovered/Not Resolved]
  - Decreased appetite [Not Recovered/Not Resolved]
  - Headache [Not Recovered/Not Resolved]
  - Nausea [Not Recovered/Not Resolved]
  - Discomfort [Not Recovered/Not Resolved]
  - Flatulence [Unknown]
  - Fatigue [Not Recovered/Not Resolved]
  - Dehydration [Recovered/Resolved]
  - Pain [Unknown]
  - Cough [Not Recovered/Not Resolved]
  - Idiopathic pulmonary fibrosis [Recovered/Resolved]
  - Productive cough [Not Recovered/Not Resolved]
  - Insomnia [Not Recovered/Not Resolved]
  - Urinary tract infection [Not Recovered/Not Resolved]
  - Memory impairment [Unknown]
  - Faeces discoloured [Not Recovered/Not Resolved]
  - Blood pressure increased [Not Recovered/Not Resolved]

NARRATIVE: CASE EVENT DATE: 20181221
